FAERS Safety Report 5273577-4 (Version None)
Quarter: 2007Q1

REPORT INFORMATION
  Report Type: 
  Country: None (occurrence: None)
  Receive Date: 20070321
  Receipt Date: 20070321
  Transmission Date: 20070707
  Serious: No
  Sender: FDA-Public Use
  Company Number: None

PATIENT
  Age: 51 Year
  Sex: Male
  Weight: 90.7194 kg

DRUGS (1)
  1. CIALIS [Suspect]
     Indication: ERECTILE DYSFUNCTION
     Dosage: 20MG ONE DAILY AS NEEDE PO  2 DOSES OVER TWO DAYS
     Route: 048
     Dates: start: 20061231, end: 20070101

REACTIONS (1)
  - TINNITUS [None]
